FAERS Safety Report 9694874 (Version 2)
Quarter: 2013Q4

REPORT INFORMATION
  Report Type: Spontaneous
  Country: US (occurrence: US)
  Receive Date: 20131119
  Receipt Date: 20131129
  Transmission Date: 20140711
  Serious: No
  Sender: FDA-Public Use
  Company Number: US-PFIZER INC-2013327639

PATIENT
  Sex: Male
  Weight: 90.7 kg

DRUGS (8)
  1. LYRICA [Suspect]
     Indication: PAIN IN EXTREMITY
     Dosage: 50 MG, 1X/DAY
     Route: 048
  2. LYRICA [Suspect]
     Indication: HYPOAESTHESIA
     Dosage: 50 MG, 3X/DAY
     Route: 048
  3. LYRICA [Suspect]
     Indication: PARAESTHESIA
  4. DEXILANT [Concomitant]
     Indication: GASTRIC DISORDER
     Dosage: 60 MG, UNK
  5. HYTRIN [Concomitant]
     Indication: PROSTATIC DISORDER
     Dosage: 2 MG, 2X/DAY
  6. DIOVAN [Concomitant]
     Dosage: 80 MG, UNK
  7. FISH OIL [Concomitant]
     Dosage: UNK
  8. VITAMIN C [Concomitant]
     Dosage: UNK

REACTIONS (2)
  - Off label use [Unknown]
  - Drug ineffective for unapproved indication [Unknown]
